FAERS Safety Report 5762677-8 (Version None)
Quarter: 2008Q2

REPORT INFORMATION
  Report Type: 
  Country: None (occurrence: None)
  Receive Date: 20080609
  Receipt Date: 20080529
  Transmission Date: 20081010
  Serious: Yes (Other)
  Sender: FDA-Public Use
  Company Number: SK-ROCHE-567204

PATIENT
  Age: 34 Year
  Sex: Female

DRUGS (1)
  1. ISOTRETINOIN [Suspect]
     Dosage: INITIAL DOSE 30 MG
     Route: 048
     Dates: start: 20070101, end: 20080201

REACTIONS (2)
  - DEPRESSION [None]
  - SUICIDAL BEHAVIOUR [None]
